FAERS Safety Report 8596322-3 (Version None)
Quarter: 2012Q3

REPORT INFORMATION
  Report Type: 
  Country: None (occurrence: None)
  Receive Date: 20120815
  Receipt Date: 20120814
  Transmission Date: 20120928
  Serious: Yes (Hospitalization)
  Sender: FDA-Public Use
  Company Number: ES-ELI_LILLY_AND_COMPANY-ES201207000173

PATIENT
  Sex: Female
  Weight: 55 kg

DRUGS (7)
  1. KILOR [Concomitant]
     Indication: ANAEMIA
     Dosage: 40 DF, QD
     Route: 048
  2. ANASMA [Concomitant]
     Indication: ASTHMA
     Dosage: UNK, BID (2 INHALATIONS PER DAY)
     Route: 055
  3. PANTOPRAZOLE [Concomitant]
     Indication: PROPHYLAXIS
     Dosage: 40 MG, QD
     Route: 048
  4. LEVOTHYROXINE SODIUM [Concomitant]
     Dosage: 75 DF, OTHER
     Route: 048
  5. FORTEO [Suspect]
     Indication: OSTEOPOROSIS
     Dosage: 20 UG, QD
     Route: 058
     Dates: start: 20120601
  6. LEVOTHYROXINE SODIUM [Concomitant]
     Indication: THYROID DISORDER
     Dosage: 50 DF, OTHER
     Route: 048
  7. NATECAL D [Concomitant]
     Indication: MINERAL SUPPLEMENTATION
     Dosage: UNK, BID
     Route: 048

REACTIONS (1)
  - KIDNEY INFECTION [None]
